FAERS Safety Report 25211851 (Version 1)
Quarter: 2025Q2

REPORT INFORMATION
  Report Type: Spontaneous
  Country: US (occurrence: US)
  Receive Date: 20250418
  Receipt Date: 20250418
  Transmission Date: 20250717
  Serious: Yes (Life-Threatening, Hospitalization, Other)
  Sender: RANBAXY
  Company Number: US-SUN PHARMACEUTICAL INDUSTRIES LTD-2025R1-504129

PATIENT
  Age: 50 Year
  Sex: Female

DRUGS (18)
  1. CLONIDINE [Suspect]
     Active Substance: CLONIDINE
     Indication: Depression
     Route: 065
  2. CLONIDINE [Suspect]
     Active Substance: CLONIDINE
     Indication: Psychotic symptom
  3. CYCLOBENZAPRINE [Suspect]
     Active Substance: CYCLOBENZAPRINE
     Indication: Depression
     Route: 065
  4. CYCLOBENZAPRINE [Suspect]
     Active Substance: CYCLOBENZAPRINE
     Indication: Psychotic symptom
  5. DULOXETINE [Suspect]
     Active Substance: DULOXETINE
     Indication: Depression
     Route: 065
  6. DULOXETINE [Suspect]
     Active Substance: DULOXETINE
     Indication: Psychotic symptom
  7. GABAPENTIN [Suspect]
     Active Substance: GABAPENTIN
     Indication: Depression
     Route: 065
  8. GABAPENTIN [Suspect]
     Active Substance: GABAPENTIN
     Indication: Psychotic symptom
  9. METHOCARBAMOL [Suspect]
     Active Substance: METHOCARBAMOL
     Indication: Depression
     Route: 065
  10. METHOCARBAMOL [Suspect]
     Active Substance: METHOCARBAMOL
     Indication: Psychotic symptom
  11. OLANZAPINE [Suspect]
     Active Substance: OLANZAPINE
     Indication: Depression
     Route: 065
  12. OLANZAPINE [Suspect]
     Active Substance: OLANZAPINE
     Indication: Psychotic symptom
  13. TAMSULOSIN [Suspect]
     Active Substance: TAMSULOSIN
     Indication: Depression
     Route: 065
  14. TAMSULOSIN [Suspect]
     Active Substance: TAMSULOSIN
     Indication: Psychotic symptom
  15. TRAZODONE [Suspect]
     Active Substance: TRAZODONE HYDROCHLORIDE
     Indication: Depression
     Route: 065
  16. TRAZODONE [Suspect]
     Active Substance: TRAZODONE HYDROCHLORIDE
     Indication: Psychotic symptom
  17. MAGNESIUM OXIDE [Suspect]
     Active Substance: MAGNESIUM OXIDE
     Indication: Depression
     Route: 065
  18. MAGNESIUM OXIDE [Suspect]
     Active Substance: MAGNESIUM OXIDE
     Indication: Psychotic symptom

REACTIONS (5)
  - Overdose [Recovering/Resolving]
  - Hypotension [Recovering/Resolving]
  - Hypoxia [Recovering/Resolving]
  - Tachycardia [Recovering/Resolving]
  - Intentional overdose [Recovering/Resolving]
